FAERS Safety Report 8577994-6 (Version None)
Quarter: 2012Q3

REPORT INFORMATION
  Report Type: 
  Country: None (occurrence: None)
  Receive Date: 20120725
  Receipt Date: 20120716
  Transmission Date: 20120928
  Serious: Yes (Hospitalization, Other)
  Sender: FDA-Public Use
  Company Number: AUR-APL-2012-03180

PATIENT
  Age: 65 Year
  Sex: Female

DRUGS (1)
  1. METFFORMIN HYDROCHLORIDE [Suspect]
     Indication: PRODUCT USED FOR UNKNOWN INDICATION
     Dosage: 3 G/DAY

REACTIONS (6)
  - HYPOTENSION [None]
  - DIARRHOEA [None]
  - VOMITING [None]
  - LACTIC ACIDOSIS [None]
  - ABDOMINAL PAIN [None]
  - ANURIA [None]
